FAERS Safety Report 4641299-6 (Version None)
Quarter: 2005Q2

REPORT INFORMATION
  Report Type: 
  Country: None (occurrence: None)
  Receive Date: 20050420
  Receipt Date: 20050420
  Transmission Date: 20051028
  Serious: Yes (Hospitalization)
  Sender: FDA-Public Use
  Company Number: None

PATIENT

DRUGS (1)
  1. GATIFLOXACIN [Suspect]
     Dosage: 200 MG PO QD
     Route: 048
     Dates: start: 20050204, end: 20050211

REACTIONS (3)
  - DELIRIUM [None]
  - DIARRHOEA [None]
  - HYPONATRAEMIA [None]
